FAERS Safety Report 25403805 (Version 2)
Quarter: 2025Q2

REPORT INFORMATION
  Report Type: Spontaneous
  Country: JP (occurrence: JP)
  Receive Date: 20250606
  Receipt Date: 20250613
  Transmission Date: 20250717
  Serious: Yes (Death, Other)
  Sender: TAKEDA
  Company Number: JP-TAKEDA-2025TJP005442

PATIENT
  Age: 90 Year
  Sex: Male

DRUGS (5)
  1. ADYNOVATE [Suspect]
     Active Substance: ANTIHEMOPHILIC FACTOR, HUMAN RECOMBINANT
     Indication: Factor VIII deficiency
     Dosage: 1500 INTERNATIONAL UNIT, Q8WEEKS
     Dates: end: 20241031
  2. ADYNOVATE [Suspect]
     Active Substance: ANTIHEMOPHILIC FACTOR, HUMAN RECOMBINANT
  3. ADYNOVATE [Suspect]
     Active Substance: ANTIHEMOPHILIC FACTOR, HUMAN RECOMBINANT
  4. HEMLIBRA [Concomitant]
     Active Substance: EMICIZUMAB-KXWH
  5. HEMLIBRA [Concomitant]
     Active Substance: EMICIZUMAB-KXWH

REACTIONS (1)
  - Death [Fatal]

NARRATIVE: CASE EVENT DATE: 20241101
